FAERS Safety Report 24630571 (Version 1)
Quarter: 2024Q4

REPORT INFORMATION
  Report Type: Spontaneous
  Country: US (occurrence: None)
  Receive Date: 20241117
  Receipt Date: 20241117
  Transmission Date: 20250114
  Serious: Yes (Life-Threatening)
  Sender: Public
  Company Number: None

PATIENT
  Age: 66 Year
  Sex: Female

DRUGS (1)
  1. TEZSPIRE [Suspect]
     Active Substance: TEZEPELUMAB-EKKO
     Indication: Asthma
     Dosage: 210MG Q4W

REACTIONS (7)
  - Back pain [None]
  - Dizziness [None]
  - Oxygen saturation decreased [None]
  - Tachycardia [None]
  - Pallor [None]
  - Hypoaesthesia [None]
  - Blood pressure increased [None]
